FAERS Safety Report 4838191-0 (Version None)
Quarter: 2005Q4

REPORT INFORMATION
  Report Type: 
  Country: None (occurrence: None)
  Receive Date: 20051122
  Receipt Date: 20051110
  Transmission Date: 20060501
  Serious: Yes (Hospitalization)
  Sender: FDA-Public Use
  Company Number: MK200511-0152-1

PATIENT
  Age: 33 Year
  Sex: Female

DRUGS (1)
  1. TRAMADOL HCL [Suspect]
     Indication: ABDOMINAL PAIN
     Dosage: 100 MG, QD, IV
     Route: 042
     Dates: start: 20040101

REACTIONS (6)
  - BLOOD CREATINE PHOSPHOKINASE INCREASED [None]
  - DRUG INEFFECTIVE [None]
  - DYSKINESIA [None]
  - HICCUPS [None]
  - MYALGIA [None]
  - MYOCLONUS [None]
